FAERS Safety Report 21382048 (Version 1)
Quarter: 2022Q3

REPORT INFORMATION
  Report Type: Spontaneous
  Country: KR (occurrence: KR)
  Receive Date: 20220927
  Receipt Date: 20220927
  Transmission Date: 20221026
  Serious: Yes (Death, Other)
  Sender: FDA-Public Use
  Company Number: KR-009507513-2209KOR008749

PATIENT
  Age: 58 Year
  Sex: Female
  Weight: 58.5 kg

DRUGS (9)
  1. PREVYMIS [Suspect]
     Active Substance: LETERMOVIR
     Indication: Antiviral prophylaxis
     Dosage: INJ. 240MG/12ML, IV, ONCE DAILY
     Route: 042
     Dates: start: 20210522, end: 20210524
  2. PREVYMIS [Suspect]
     Active Substance: LETERMOVIR
     Dosage: INJ. 240MG/12ML, IV, ONCE DAILY
     Route: 042
     Dates: start: 20210527, end: 20210527
  3. PREVYMIS [Suspect]
     Active Substance: LETERMOVIR
     Indication: Antiviral prophylaxis
     Dosage: TAB 240MG, PO,  ONCE DAILY
     Route: 048
     Dates: start: 20210514, end: 20210521
  4. PREVYMIS [Suspect]
     Active Substance: LETERMOVIR
     Dosage: TAB 240MG, PO,  ONCE DAILY
     Route: 048
     Dates: start: 20210525, end: 20210526
  5. ATACAND [Concomitant]
     Active Substance: CANDESARTAN CILEXETIL
     Indication: Cardiac failure
     Dosage: 4 MG, PO, 1/DAY
     Route: 048
     Dates: start: 20210430
  6. DIACEREIN [Concomitant]
     Active Substance: DIACEREIN
     Indication: Synovitis
     Dosage: 50 MG, PO, 1/DAY
     Route: 048
     Dates: start: 20210430
  7. SULFAMETHOXAZOLE\TRIMETHOPRIM [Concomitant]
     Active Substance: SULFAMETHOXAZOLE\TRIMETHOPRIM
     Indication: Infection prophylaxis
     Dosage: 200 MG, PO, 2/DAY
     Route: 048
     Dates: start: 20210524
  8. CIPOL-N [Concomitant]
     Indication: Prophylaxis against graft versus host disease
     Dosage: 100 MG, PO, 1/DAY
     Route: 048
     Dates: start: 20210608
  9. ISONIAZID [Concomitant]
     Active Substance: ISONIAZID
     Indication: Latent tuberculosis
     Dosage: 100 MG, PO, 3/DAY
     Route: 048
     Dates: start: 20210504

REACTIONS (2)
  - Pneumonia [Fatal]
  - Bacteraemia [Fatal]

NARRATIVE: CASE EVENT DATE: 20210101
